FAERS Safety Report 6793647-9 (Version None)
Quarter: 2010Q2

REPORT INFORMATION
  Report Type: 
  Country: None (occurrence: None)
  Receive Date: 20100624
  Receipt Date: 20081229
  Transmission Date: 20101027
  Serious: No
  Sender: FDA-Public Use
  Company Number: US-PFIZER INC-2008160401

PATIENT
  Sex: Female
  Weight: 78.912 kg

DRUGS (3)
  1. CADUET [Suspect]
     Indication: HYPERTENSION
     Dosage: AMLODIPINE 10 / ATORVASTATIN 20
     Dates: start: 20071101, end: 20081201
  2. CADUET [Suspect]
     Indication: BLOOD CHOLESTEROL INCREASED
  3. ALEVE (CAPLET) [Concomitant]
     Indication: ARTHRITIS

REACTIONS (1)
  - MYALGIA [None]
